FAERS Safety Report 5832615-8 (Version None)
Quarter: 2008Q3

REPORT INFORMATION
  Report Type: 
  Country: None (occurrence: None)
  Receive Date: 20080804
  Receipt Date: 20080724
  Transmission Date: 20090109
  Serious: Yes (Other)
  Sender: FDA-Public Use
  Company Number: PHHY2008MX15300

PATIENT
  Age: 67 Year
  Sex: Female

DRUGS (1)
  1. ZELMAC [Suspect]
     Indication: IRRITABLE BOWEL SYNDROME
     Dosage: 6MG PER DAY
     Route: 048
     Dates: start: 20051001

REACTIONS (2)
  - GASTRITIS [None]
  - INFARCTION [None]
